FAERS Safety Report 9301008 (Version 1)
Quarter: 2013Q2

REPORT INFORMATION
  Report Type: Spontaneous
  Country: US (occurrence: US)
  Receive Date: 20130521
  Receipt Date: 20130521
  Transmission Date: 20140414
  Serious: Yes (Other)
  Sender: FDA-Public Use
  Company Number: US-PFIZER INC-2013154443

PATIENT
  Age: 44 Year
  Sex: Female
  Weight: 87.53 kg

DRUGS (1)
  1. LYRICA [Suspect]
     Indication: NEUROPATHY PERIPHERAL
     Dosage: UNK, 50MG IN THE MORNING AND 75MG AT NIGHT
     Dates: start: 201304

REACTIONS (3)
  - Intentional drug misuse [Unknown]
  - Nausea [Unknown]
  - Weight increased [Unknown]
